FAERS Safety Report 6088666-4 (Version None)
Quarter: 2009Q1

REPORT INFORMATION
  Report Type: 
  Country: None (occurrence: None)
  Receive Date: 20090224
  Receipt Date: 20090212
  Transmission Date: 20090719
  Serious: Yes (Hospitalization)
  Sender: FDA-Public Use
  Company Number: JP-PFIZER INC-2008153938

PATIENT

DRUGS (7)
  1. SUNITINIB MALATE [Suspect]
     Indication: RENAL CELL CARCINOMA
     Dosage: 50 MG, 1X/DAY
     Route: 048
     Dates: start: 20081029, end: 20081214
  2. MITIGLINIDE [Concomitant]
     Dosage: UNK
     Route: 048
  3. ASTOMIN [Concomitant]
     Indication: COUGH
     Dosage: UNK
     Route: 048
  4. MUCOTRON [Concomitant]
     Indication: COUGH
     Dosage: UNK
     Route: 048
  5. MAGNESIUM OXIDE [Concomitant]
     Dosage: UNK
     Route: 048
  6. AVAPRO [Concomitant]
     Route: 048
     Dates: start: 20081122, end: 20081125
  7. CODEINE PHOSPHATE [Concomitant]
     Indication: COUGH
     Dosage: UNK
     Route: 048
     Dates: start: 20081122

REACTIONS (2)
  - NEUTROPHIL COUNT DECREASED [None]
  - PLEURAL EFFUSION [None]
